FAERS Safety Report 11880064 (Version 1)
Quarter: 2015Q4

REPORT INFORMATION
  Report Type: Other
  Country: FR (occurrence: FR)
  Receive Date: 20151230
  Receipt Date: 20151230
  Transmission Date: 20160305
  Serious: Yes (Life-Threatening, Hospitalization)
  Sender: FDA-Public Use
  Company Number: FR-MYLANLABS-2015M1046869

PATIENT

DRUGS (8)
  1. LOSARTAN                           /01121602/ [Concomitant]
     Active Substance: LOSARTAN
     Indication: PRODUCT USED FOR UNKNOWN INDICATION
     Dosage: 1 DF, QD
  2. AMIODARONE MYLAN 200 MG, COMPRIM? S?CABLE [Suspect]
     Active Substance: AMIODARONE
     Indication: ARRHYTHMIA
     Dosage: 3 DF, QD
     Route: 048
     Dates: start: 20151116, end: 201511
  3. AMIODARONE MYLAN 200 MG, COMPRIM? S?CABLE [Suspect]
     Active Substance: AMIODARONE
     Dosage: 1 DF, QD
     Route: 048
     Dates: start: 201511, end: 20151119
  4. LASILIX                            /00032601/ [Concomitant]
     Active Substance: FUROSEMIDE
     Dosage: 125 MG, QD
  5. ALLOPURINOL                        /00003302/ [Concomitant]
     Active Substance: ALLOPURINOL
     Indication: PRODUCT USED FOR UNKNOWN INDICATION
     Dosage: 1 DF, PM
  6. PRADAXA [Suspect]
     Active Substance: DABIGATRAN ETEXILATE MESYLATE
     Indication: ATRIAL FIBRILLATION
     Dosage: 1 DF, BID
     Route: 048
     Dates: start: 20151116, end: 20151119
  7. TAHOR [Concomitant]
     Active Substance: ATORVASTATIN CALCIUM
     Indication: PRODUCT USED FOR UNKNOWN INDICATION
     Dosage: 1 DF, QD
  8. LASILIX                            /00032601/ [Concomitant]
     Active Substance: FUROSEMIDE
     Indication: PRODUCT USED FOR UNKNOWN INDICATION
     Dosage: 40 MG, QD

REACTIONS (7)
  - Renal tubular necrosis [Unknown]
  - Shock haemorrhagic [Recovering/Resolving]
  - Metrorrhagia [None]
  - Haemoglobin decreased [Unknown]
  - Renal failure [Not Recovered/Not Resolved]
  - Uterine haemorrhage [Recovering/Resolving]
  - International normalised ratio increased [None]

NARRATIVE: CASE EVENT DATE: 20151119
